FAERS Safety Report 12088287 (Version 1)
Quarter: 2016Q1

REPORT INFORMATION
  Report Type: Spontaneous
  Country: ES (occurrence: ES)
  Receive Date: 20160218
  Receipt Date: 20160218
  Transmission Date: 20160526
  Serious: Yes (Death)
  Sender: FDA-Public Use
  Company Number: ES-CIPLA LTD.-2016ES01083

PATIENT

DRUGS (4)
  1. SEROTONIN [Concomitant]
     Active Substance: SEROTONIN
     Indication: PREMEDICATION
     Route: 042
  2. ATROPINE. [Concomitant]
     Active Substance: ATROPINE
     Indication: PREMEDICATION
     Dosage: 0.25 MG, UNK
     Route: 058
  3. IRINOTECAN [Suspect]
     Active Substance: IRINOTECAN
     Indication: GLIOBLASTOMA
     Dosage: 100 MG/M2 ON DAYS 8 AND 22 OF 28-DAY CYCLES
     Route: 042
  4. TEMOZOLOMIDE. [Suspect]
     Active Substance: TEMOZOLOMIDE
     Indication: GLIOBLASTOMA
     Dosage: 50 MG/M2 DIVIDED INTO THREE DAILY INTAKES, EXCEPT FOR A SINGLE 100MG/M2 DOSE,
     Route: 048

REACTIONS (1)
  - Pulmonary embolism [Fatal]
